FAERS Safety Report 14208091 (Version 5)
Quarter: 2022Q2

REPORT INFORMATION
  Report Type: Spontaneous
  Country: US (occurrence: US)
  Receive Date: 20171121
  Receipt Date: 20220521
  Transmission Date: 20220721
  Serious: Yes (Death, Other)
  Sender: FDA-Public Use
  Company Number: PHEH2017US037197

PATIENT
  Age: 14 Year
  Sex: Female

DRUGS (1)
  1. KYMRIAH [Suspect]
     Active Substance: TISAGENLECLEUCEL
     Indication: Acute lymphocytic leukaemia refractory
     Dosage: UNK UNK, ONCE/SINGLE
     Route: 042
     Dates: start: 20171109, end: 20171109

REACTIONS (4)
  - Acute lymphocytic leukaemia refractory [Fatal]
  - Malignant neoplasm progression [Fatal]
  - White blood cell count increased [Unknown]
  - Cytokine release syndrome [Unknown]
